FAERS Safety Report 5826525-X (Version None)
Quarter: 2008Q3

REPORT INFORMATION
  Report Type: 
  Country: None (occurrence: None)
  Receive Date: 20080725
  Receipt Date: 20080718
  Transmission Date: 20090109
  Serious: Yes (Other)
  Sender: FDA-Public Use
  Company Number: CHPA2008US12209

PATIENT
  Sex: Male

DRUGS (3)
  1. BENEFIBER PLUS CALCIUM WITH WHEAT DEXTRIN(NCH)(CALCIUM CARBONATE, WHEA [Suspect]
     Indication: NUTRITIONAL SUPPORT
     Dosage: 3 TSP, QD, ORAL
     Route: 048
     Dates: start: 20080701, end: 20080718
  2. ZESTRIL [Concomitant]
  3. ZESTRIL [Concomitant]

REACTIONS (1)
  - HYPERTENSION [None]
